FAERS Safety Report 10867147 (Version 1)
Quarter: 2015Q1

REPORT INFORMATION
  Report Type: Spontaneous
  Country: GB (occurrence: GB)
  Receive Date: 20150225
  Receipt Date: 20150225
  Transmission Date: 20150721
  Serious: Yes (Hospitalization)
  Sender: FDA-Public Use
  Company Number: GB-CIPLA LTD.-2015GB01372

PATIENT

DRUGS (7)
  1. EPIRUBICIN [Suspect]
     Active Substance: EPIRUBICIN
     Indication: GASTRIC CANCER
     Dosage: 110MG
     Route: 042
     Dates: start: 20130508
  2. BISOPROLOL [Concomitant]
     Active Substance: BISOPROLOL
     Dosage: 2.5 MG
     Route: 042
     Dates: start: 20130612
  3. BEVACIZUMAB [Suspect]
     Active Substance: BEVACIZUMAB
     Indication: GASTRIC CANCER
     Dosage: 850MG
     Route: 042
     Dates: start: 20130508
  4. PERINDOPRIL [Concomitant]
     Active Substance: PERINDOPRIL
     Dosage: 2 MG
     Route: 042
     Dates: start: 20130529
  5. CISPLATIN. [Suspect]
     Active Substance: CISPLATIN
     Indication: GASTRIC CANCER
     Dosage: 130MG
     Route: 042
     Dates: start: 20130508
  6. CAPECITABINE. [Suspect]
     Active Substance: CAPECITABINE
     Indication: GASTRIC CANCER
     Dosage: 2500MG TWICE IN A DAY
     Route: 048
     Dates: start: 20130508
  7. LANSOPRAZOLE. [Concomitant]
     Active Substance: LANSOPRAZOLE
     Dosage: 30 MG
     Route: 042
     Dates: start: 20130508

REACTIONS (3)
  - Dyspnoea [Recovered/Resolved]
  - Chest pain [Not Recovered/Not Resolved]
  - Pyrexia [Recovered/Resolved]

NARRATIVE: CASE EVENT DATE: 20130522
